FAERS Safety Report 6708470-0 (Version None)
Quarter: 2010Q2

REPORT INFORMATION
  Report Type: 
  Country: None (occurrence: None)
  Receive Date: 20100503
  Receipt Date: 20090408
  Transmission Date: 20101027
  Serious: No
  Sender: FDA-Public Use
  Company Number: US-ASTRAZENECA-2009UW08863

PATIENT
  Age: 28774 Day
  Sex: Female
  Weight: 70.3 kg

DRUGS (1)
  1. NEXIUM [Suspect]
     Route: 048
     Dates: start: 20090227, end: 20090328

REACTIONS (3)
  - GLOSSITIS [None]
  - SINUS HEADACHE [None]
  - STOMATITIS [None]
